FAERS Safety Report 8833187 (Version 1)
Quarter: 2012Q4

REPORT INFORMATION
  Report Type: Report from Study
  Country: CA (occurrence: CA)
  Receive Date: 20121010
  Receipt Date: 20121010
  Transmission Date: 20130627
  Serious: Yes (Other)
  Sender: FDA-Public Use
  Company Number: CA-JNJFOC-20121003639

PATIENT
  Sex: Male
  Weight: 110 kg

DRUGS (2)
  1. STELARA [Suspect]
     Indication: PSORIASIS
     Dates: start: 20110711, end: 20120917
  2. SINGULAIR [Concomitant]

REACTIONS (2)
  - Acne [Unknown]
  - Eczema [Unknown]
